FAERS Safety Report 5201774-2 (Version None)
Quarter: 2007Q1

REPORT INFORMATION
  Report Type: 
  Country: None (occurrence: None)
  Receive Date: 20070108
  Receipt Date: 20061229
  Transmission Date: 20070707
  Serious: Yes (Death, Life-Threatening, Hospitalization)
  Sender: FDA-Public Use
  Company Number: JP-MERCK-0701USA00573

PATIENT
  Age: 87 Year
  Sex: Male

DRUGS (5)
  1. SINGULAIR [Suspect]
     Route: 048
  2. THEO-DUR [Concomitant]
     Route: 048
  3. CLEANAL [Concomitant]
     Route: 048
  4. MUCODYNE [Concomitant]
     Route: 048
  5. HOKUNALIN [Concomitant]
     Route: 061

REACTIONS (3)
  - CARDIAC FAILURE [None]
  - COR PULMONALE CHRONIC [None]
  - INTESTINAL OBSTRUCTION [None]
